FAERS Safety Report 25499173 (Version 1)
Quarter: 2025Q3

REPORT INFORMATION
  Report Type: Spontaneous
  Country: EU (occurrence: EU)
  Receive Date: 20250701
  Receipt Date: 20250701
  Transmission Date: 20251020
  Serious: Yes (Other)
  Sender: AUROBINDO
  Company Number: EU-GILEAD-2019-0436475

PATIENT
  Age: 48 Year
  Sex: Female

DRUGS (9)
  1. ACYCLOVIR [Suspect]
     Active Substance: ACYCLOVIR
     Indication: HIV infection
     Route: 065
  2. MEROPENEM [Suspect]
     Active Substance: MEROPENEM
     Indication: HIV infection
     Route: 065
  3. TENOFOVIR DISOPROXIL [Suspect]
     Active Substance: TENOFOVIR DISOPROXIL
     Indication: HIV infection
     Route: 065
  4. CEFTRIAXONE [Suspect]
     Active Substance: CEFTRIAXONE
     Indication: HIV infection
     Route: 065
  5. RALTEGRAVIR [Suspect]
     Active Substance: RALTEGRAVIR
     Indication: HIV infection
     Route: 065
  6. EMTRICITABINE [Suspect]
     Active Substance: EMTRICITABINE
     Indication: HIV infection
     Route: 065
  7. DARUNAVIR [Concomitant]
     Active Substance: DARUNAVIR
     Indication: HIV infection
     Route: 065
  8. NEVIRAPINE [Concomitant]
     Active Substance: NEVIRAPINE
     Indication: HIV infection
     Route: 065
  9. RITONAVIR [Concomitant]
     Active Substance: RITONAVIR
     Indication: HIV infection
     Route: 065

REACTIONS (1)
  - Drug ineffective [Recovered/Resolved]
